FAERS Safety Report 10517113 (Version 1)
Quarter: 2014Q4

REPORT INFORMATION
  Report Type: Spontaneous
  Country: US (occurrence: None)
  Receive Date: 20141003
  Receipt Date: 20141003
  Transmission Date: 20150528
  Serious: Yes (Hospitalization)
  Sender: FDA-Public Use
  Company Number: 1297501

PATIENT
  Age: 53 Year
  Sex: Female

DRUGS (2)
  1. RIBAVIRIN. [Suspect]
     Active Substance: RIBAVIRIN
     Indication: HEPATITIS C
     Dosage: FREQUENCY 2-3 IN 12 HOURS, 400MG IN AM 600MG IN PM, 1000MG DAILY (200 MG, 12 HR) , ORAL
     Route: 048
     Dates: start: 2013
  2. PEGASYS [Suspect]
     Active Substance: PEGINTERFERON ALFA-2A
     Indication: HEPATITIS C
     Route: 058
     Dates: start: 2013

REACTIONS (2)
  - Haemoglobin decreased [None]
  - Anaemia [None]

NARRATIVE: CASE EVENT DATE: 2013
